FAERS Safety Report 10446718 (Version 1)
Quarter: 2014Q3

REPORT INFORMATION
  Report Type: Spontaneous
  Country: US (occurrence: None)
  Receive Date: 20140910
  Receipt Date: 20140910
  Transmission Date: 20150326
  Serious: No
  Sender: FDA-Public Use
  Company Number: None

PATIENT
  Age: 53 Year
  Sex: Female
  Weight: 86.18 kg

DRUGS (2)
  1. DULOXETINE [Suspect]
     Active Substance: DULOXETINE
     Indication: NEUROPATHY PERIPHERAL
     Dosage: 1 CAPSULE ONCE DAILY TAKEN BY MOUTH
     Route: 048
     Dates: start: 20140401, end: 20140901
  2. DULOXETINE [Suspect]
     Active Substance: DULOXETINE
     Dosage: 1 CAPSULE ONCE DAILY TAKEN BY MOUTH
     Route: 048
     Dates: start: 20140401, end: 20140901

REACTIONS (8)
  - Depression [None]
  - Headache [None]
  - Myalgia [None]
  - Therapeutic response changed [None]
  - Anxiety [None]
  - Dizziness [None]
  - Off label use [None]
  - Product substitution issue [None]

NARRATIVE: CASE EVENT DATE: 20140901
